FAERS Safety Report 4665148-5 (Version None)
Quarter: 2005Q2

REPORT INFORMATION
  Report Type: 
  Country: None (occurrence: None)
  Receive Date: 20050517
  Receipt Date: 20050427
  Transmission Date: 20051028
  Serious: Yes (Hospitalization)
  Sender: FDA-Public Use
  Company Number: EWC050543795

PATIENT
  Age: 20 Year
  Sex: Male

DRUGS (3)
  1. ZYPREXA [Suspect]
  2. CHLORDEMETILDIAZEPAM [Concomitant]
  3. BUPRENORPHINE [Concomitant]

REACTIONS (5)
  - COMA [None]
  - DRUG TOXICITY [None]
  - INTENTIONAL MISUSE [None]
  - INTENTIONAL SELF-INJURY [None]
  - OVERDOSE [None]
